FAERS Safety Report 9704801 (Version 2)
Quarter: 2013Q4

REPORT INFORMATION
  Report Type: Report from Study
  Country: AR (occurrence: AR)
  Receive Date: 20131122
  Receipt Date: 20131210
  Transmission Date: 20140711
  Serious: Yes (Hospitalization)
  Sender: FDA-Public Use
  Company Number: PHHY2013AR134302

PATIENT
  Sex: Male

DRUGS (1)
  1. EXFORGE [Suspect]
     Indication: HYPERTENSION
     Dosage: 1 DF, PER DAY
     Route: 048

REACTIONS (4)
  - Anaemia [Recovering/Resolving]
  - Stress [Recovering/Resolving]
  - Gastric disorder [Recovering/Resolving]
  - Vomiting [Recovering/Resolving]
